FAERS Safety Report 22194705 (Version 5)
Quarter: 2025Q2

REPORT INFORMATION
  Report Type: Spontaneous
  Country: CA (occurrence: CA)
  Receive Date: 20230411
  Receipt Date: 20250524
  Transmission Date: 20250717
  Serious: Yes (Death, Hospitalization, Other)
  Sender: CELLTRION
  Company Number: CA-CELLTRION INC.-2023CA007167

PATIENT

DRUGS (9)
  1. RITUXIMAB [Suspect]
     Active Substance: RITUXIMAB
     Indication: Product used for unknown indication
  2. SOLIRIS [Suspect]
     Active Substance: ECULIZUMAB
     Indication: Neuromyelitis optica spectrum disorder
     Dosage: 900.0 MILLIGRAM, 1 EVERY 1 WEEK
  3. SOLIRIS [Suspect]
     Active Substance: ECULIZUMAB
     Indication: Neuromyelitis optica spectrum disorder
  4. SOLIRIS [Suspect]
     Active Substance: ECULIZUMAB
  5. SOLIRIS [Suspect]
     Active Substance: ECULIZUMAB
     Dosage: 1200 MG, 1 EVERY 2 WEEKS
  6. SOLIRIS [Suspect]
     Active Substance: ECULIZUMAB
  7. CALCIUM [Concomitant]
     Active Substance: CALCIUM
  8. TYLENOL [Concomitant]
     Active Substance: ACETAMINOPHEN
  9. ERGOCALCIFEROL [Concomitant]
     Active Substance: ERGOCALCIFEROL

REACTIONS (8)
  - Neuromyelitis optica spectrum disorder [Fatal]
  - Cardiac arrest [Fatal]
  - Brain oedema [Fatal]
  - Nutritional condition abnormal [Fatal]
  - Cardiac failure [Fatal]
  - Bacterial sepsis [Fatal]
  - Endocarditis [Fatal]
  - Sepsis [Fatal]
